FAERS Safety Report 5125602-9 (Version None)
Quarter: 2006Q4

REPORT INFORMATION
  Report Type: 
  Country: None (occurrence: None)
  Receive Date: 20061006
  Receipt Date: 20060928
  Transmission Date: 20070319
  Serious: Yes (Other)
  Sender: FDA-Public Use
  Company Number: TPA2006A01569

PATIENT
  Age: 47 Year
  Sex: Female
  Weight: 63.05 kg

DRUGS (9)
  1. ROZEREM (RAMELTERON) (8 MILLIGRAM, TABLETS) [Suspect]
     Indication: INSOMNIA
     Dosage: 8 MG, QHS, PER ORAL
     Route: 048
     Dates: start: 20060829, end: 20060904
  2. IMIPRAMINE [Concomitant]
  3. HYDROCODONE (HYDROCODONE) [Concomitant]
  4. NATURAL HORMONE ESTRADIOL (ESTRADIOL) [Concomitant]
  5. ESTRA-C (ALL OTHER THERAPEUTIC PRODUCTS) [Concomitant]
  6. GLUCOSAMINE (GLUCOSAMINE) [Concomitant]
  7. NIACIN [Concomitant]
  8. CALCIUM (CALCIUM) [Concomitant]
  9. GRAPE SEED EXTRACT (VITIS VINIFERA EXTRACT) [Concomitant]

REACTIONS (9)
  - ABNORMAL BEHAVIOUR [None]
  - FATIGUE [None]
  - FEELING ABNORMAL [None]
  - HALLUCINATIONS, MIXED [None]
  - HYPERSOMNIA [None]
  - IRRITABILITY [None]
  - PARANOIA [None]
  - SCREAMING [None]
  - WEIGHT DECREASED [None]
